FAERS Safety Report 22265979 (Version 1)
Quarter: 2023Q2

REPORT INFORMATION
  Report Type: Spontaneous
  Country: GB (occurrence: GB)
  Receive Date: 20230428
  Receipt Date: 20230428
  Transmission Date: 20230722
  Serious: Yes (Hospitalization)
  Sender: FDA-Public Use
  Company Number: GB-MHRA-MED-202304191412218520-WNLCH

PATIENT
  Age: 75 Year
  Sex: Male

DRUGS (2)
  1. DOXYCYCLINE [Suspect]
     Active Substance: DOXYCYCLINE
     Indication: Chronic obstructive pulmonary disease
     Dosage: 100 MILLIGRAM DAILY; 100MG DAILY
     Route: 065
     Dates: start: 20221212, end: 20221219
  2. PRAVASTATIN [Suspect]
     Active Substance: PRAVASTATIN
     Indication: Blood cholesterol
     Dosage: 10 MILLIGRAM DAILY; 10MG AT NIGHT
     Route: 065
     Dates: start: 20170410, end: 20230206

REACTIONS (1)
  - Jaundice [Recovered/Resolved]

NARRATIVE: CASE EVENT DATE: 20230123
